FAERS Safety Report 24397487 (Version 2)
Quarter: 2024Q4

REPORT INFORMATION
  Report Type: Spontaneous
  Country: US (occurrence: US)
  Receive Date: 20241004
  Receipt Date: 20241113
  Transmission Date: 20250115
  Serious: No
  Sender: CSL BEHRING
  Company Number: US-BEH-2024179204

PATIENT
  Age: 74 Year
  Sex: Female
  Weight: 92.971 kg

DRUGS (3)
  1. HIZENTRA [Suspect]
     Active Substance: HUMAN IMMUNOGLOBULIN G
     Indication: Hypogammaglobulinaemia
     Dosage: 10 G, QW
     Route: 058
     Dates: start: 201911
  2. HIZENTRA [Suspect]
     Active Substance: HUMAN IMMUNOGLOBULIN G
     Indication: Immunodeficiency common variable
  3. DIPHENHYDRAMINE [Concomitant]
     Active Substance: DIPHENHYDRAMINE

REACTIONS (5)
  - Lung disorder [Unknown]
  - Infusion site pain [Unknown]
  - Weight decreased [Unknown]
  - Stress [Unknown]
  - Pain [Unknown]

NARRATIVE: CASE EVENT DATE: 20240901
